FAERS Safety Report 17541837 (Version 1)
Quarter: 2020Q1

REPORT INFORMATION
  Report Type: Spontaneous
  Country: CH (occurrence: CH)
  Receive Date: 20200314
  Receipt Date: 20200314
  Transmission Date: 20200409
  Serious: Yes (Other)
  Sender: FDA-Public Use
  Company Number: CH-ABBVIE-20K-151-3319579-00

PATIENT
  Age: 80 Year
  Sex: Male

DRUGS (2)
  1. VENCLYXTO [Suspect]
     Active Substance: VENETOCLAX
     Indication: ACUTE MYELOID LEUKAEMIA
     Dosage: THERAPY STOPPED BEFORE REACHING 400 MG/DAY
     Route: 048
     Dates: start: 201909, end: 20191103
  2. DECITABINE. [Concomitant]
     Active Substance: DECITABINE
     Indication: PRODUCT USED FOR UNKNOWN INDICATION
     Dosage: SINCE 5 MONTH

REACTIONS (5)
  - Monocyte count increased [Unknown]
  - Off label use [Recovered/Resolved]
  - Febrile neutropenia [Recovered/Resolved]
  - Pancytopenia [Not Recovered/Not Resolved]
  - Blast cells present [Not Recovered/Not Resolved]

NARRATIVE: CASE EVENT DATE: 2019
